FAERS Safety Report 16627206 (Version 4)
Quarter: 2019Q4

REPORT INFORMATION
  Report Type: Spontaneous
  Country: JP (occurrence: JP)
  Receive Date: 20190724
  Receipt Date: 20191126
  Transmission Date: 20200122
  Serious: Yes (Other)
  Sender: FDA-Public Use
  Company Number: JP-EISAI MEDICAL RESEARCH-EC-2019-059338

PATIENT
  Age: 74 Year
  Sex: Male
  Weight: 82 kg

DRUGS (4)
  1. LENVIMA [Suspect]
     Active Substance: LENVATINIB
     Route: 048
     Dates: start: 201910
  2. LENVIMA [Suspect]
     Active Substance: LENVATINIB
     Indication: HEPATOCELLULAR CARCINOMA
     Route: 048
     Dates: start: 20190709, end: 201908
  3. LENVIMA [Suspect]
     Active Substance: LENVATINIB
     Route: 048
     Dates: start: 201909, end: 201910
  4. LENVIMA [Suspect]
     Active Substance: LENVATINIB
     Dosage: 8 MG, ON A 2 TO 3 DAYS ON / 1 TO 2 DAYS OFF BASIS
     Route: 048
     Dates: start: 201910, end: 201910

REACTIONS (6)
  - Proteinuria [Recovering/Resolving]
  - Palmar-plantar erythrodysaesthesia syndrome [Recovering/Resolving]
  - Atrial fibrillation [Recovered/Resolved]
  - Malaise [Recovered/Resolved]
  - Thyroid function test abnormal [Recovering/Resolving]
  - Blood pressure increased [Recovering/Resolving]

NARRATIVE: CASE EVENT DATE: 20190717
